FAERS Safety Report 15660269 (Version 1)
Quarter: 2018Q4

REPORT INFORMATION
  Report Type: Spontaneous
  Country: US (occurrence: US)
  Receive Date: 20181115
  Receipt Date: 20181115
  Transmission Date: 20190205
  Serious: Yes (Other)
  Sender: FDA-Public Use
  Company Number: None

PATIENT
  Age: 64 Year
  Sex: Male
  Weight: 91.35 kg

DRUGS (1)
  1. LATANOPROST OPHTHALMIC SOLUTION [Suspect]
     Active Substance: LATANOPROST
     Indication: INTRAOCULAR PRESSURE INCREASED
     Dosage: ?          QUANTITY:1 DROP(S);?
     Route: 047
     Dates: start: 20180509

REACTIONS (6)
  - Eye discharge [None]
  - Upper-airway cough syndrome [None]
  - Influenza [None]
  - Lung infection [None]
  - Pruritus [None]
  - Cough [None]

NARRATIVE: CASE EVENT DATE: 20181005
